FAERS Safety Report 22294572 (Version 1)
Quarter: 2023Q2

REPORT INFORMATION
  Report Type: Spontaneous
  Country: CN (occurrence: None)
  Receive Date: 20230508
  Receipt Date: 20230508
  Transmission Date: 20230721
  Serious: Yes (Disabling)
  Sender: FDA-Public Use
  Company Number: CN-ROCHE-3344994

PATIENT
  Age: 58 Year
  Sex: Male
  Weight: 68 kg

DRUGS (4)
  1. AVASTIN [Suspect]
     Active Substance: BEVACIZUMAB
     Indication: Hepatic cancer
     Dosage: SUBSEQUENT DOSES TAKEN ON: 22/FEB/2023
     Route: 041
     Dates: start: 20230202
  2. SINTILIMAB [Suspect]
     Active Substance: SINTILIMAB
     Indication: Hepatic cancer
     Dosage: SUBSEQUENT DOSES ADMINISTERED ON 22-FEB-2023, 17-MAR-2023,
     Route: 041
     Dates: start: 20230202
  3. SODIUM CHLORIDE [Concomitant]
     Active Substance: SODIUM CHLORIDE
     Indication: Hepatic cancer
     Dosage: 22-FEB-2023, 17-MAR-2023
     Route: 041
     Dates: start: 20230202, end: 20230202
  4. LENVATINIB MESYLATE [Concomitant]
     Active Substance: LENVATINIB MESYLATE
     Indication: Hepatic cancer
     Route: 048
     Dates: start: 20230314, end: 20230323

REACTIONS (2)
  - Thyroid disorder [Unknown]
  - Off label use [Unknown]

NARRATIVE: CASE EVENT DATE: 20230411
